FAERS Safety Report 24958254 (Version 2)
Quarter: 2025Q1

REPORT INFORMATION
  Report Type: Spontaneous
  Country: SE (occurrence: SE)
  Receive Date: 20250212
  Receipt Date: 20250224
  Transmission Date: 20250409
  Serious: Yes (Other)
  Sender: TEVA
  Company Number: SE-002147023-NVSC2024SE232351

PATIENT
  Sex: Male
  Weight: 88 kg

DRUGS (4)
  1. MIRTAZAPINE [Suspect]
     Active Substance: MIRTAZAPINE
     Indication: Product used for unknown indication
     Route: 065
  2. TEGRETOL [Suspect]
     Active Substance: CARBAMAZEPINE
     Indication: Cerebral artery occlusion
     Route: 048
  3. TEGRETOL [Suspect]
     Active Substance: CARBAMAZEPINE
     Indication: Cerebral artery occlusion
     Route: 048
     Dates: start: 1991
  4. TEGRETOL [Suspect]
     Active Substance: CARBAMAZEPINE
     Indication: Cerebral artery occlusion
     Route: 048

REACTIONS (4)
  - Rectal cancer [Recovered/Resolved]
  - Gynaecomastia [Not Recovered/Not Resolved]
  - Off label use [Unknown]
  - Androgen deficiency [Not Recovered/Not Resolved]
